FAERS Safety Report 17913400 (Version 1)
Quarter: 2020Q2

REPORT INFORMATION
  Report Type: Spontaneous
  Country: US (occurrence: US)
  Receive Date: 20200618
  Receipt Date: 20200618
  Transmission Date: 20200714
  Serious: No
  Sender: FDA-Public Use
  Company Number: US-THERAPEUTICSMD-2020TMD01914

PATIENT
  Age: 87 Year
  Sex: Female

DRUGS (1)
  1. IMVEXXY [Suspect]
     Active Substance: ESTRADIOL
     Dosage: 10 ?G, 1X/DAY AT BEDTIME
     Route: 067
     Dates: start: 20200417

REACTIONS (5)
  - Product use complaint [Unknown]
  - Pain [Unknown]
  - Off label use [Unknown]
  - Burning sensation [Unknown]
  - Product residue present [Unknown]

NARRATIVE: CASE EVENT DATE: 202004
